FAERS Safety Report 4476164-0 (Version None)
Quarter: 2004Q3

REPORT INFORMATION
  Report Type: 
  Country: None (occurrence: None)
  Receive Date: 20040923
  Receipt Date: 20040727
  Transmission Date: 20050211
  Serious: No
  Sender: FDA-Public Use
  Company Number: USA040773778

PATIENT
  Age: 80 Year
  Sex: Female
  Weight: 55 kg

DRUGS (6)
  1. FORTEO [Suspect]
     Indication: OSTEOPOROSIS
     Dosage: 20 UG DAY
     Dates: start: 20040701
  2. XANAX (ALPRAZOLAM DUM) [Concomitant]
  3. ZOLOFT [Concomitant]
  4. VASOTEC [Concomitant]
  5. PROCARDIA XL [Concomitant]
  6. DITROPAN [Concomitant]

REACTIONS (1)
  - INJECTION SITE ERYTHEMA [None]
